FAERS Safety Report 7000640-X (Version None)
Quarter: 2010Q3

REPORT INFORMATION
  Report Type: 
  Country: None (occurrence: None)
  Receive Date: 20100902
  Receipt Date: 20100304
  Transmission Date: 20110219
  Serious: Yes (Disabling, Other)
  Sender: FDA-Public Use
  Company Number: 226633USA

PATIENT
  Sex: Female

DRUGS (2)
  1. METOCLOPRAMIDE [Suspect]
     Indication: GASTROOESOPHAGEAL REFLUX DISEASE
     Dosage: 20-30DAILY; 20-30MG DAILY
     Dates: start: 20040701, end: 20040901
  2. METOCLOPRAMIDE [Suspect]
     Indication: GASTROOESOPHAGEAL REFLUX DISEASE
     Dosage: 20-30DAILY; 20-30MG DAILY
     Dates: start: 20050401, end: 20090101

REACTIONS (2)
  - DEFORMITY [None]
  - DYSKINESIA [None]
